FAERS Safety Report 5815370-7 (Version None)
Quarter: 2008Q3

REPORT INFORMATION
  Report Type: 
  Country: None (occurrence: None)
  Receive Date: 20080715
  Receipt Date: 20080630
  Transmission Date: 20090109
  Serious: Yes (Hospitalization)
  Sender: FDA-Public Use
  Company Number: DSA_31979_2008

PATIENT
  Sex: Male

DRUGS (5)
  1. LORAZEPAM [Suspect]
     Dosage: 40 MG 1X ORAL
     Route: 048
     Dates: start: 20080606, end: 20080606
  2. ETHANOL (ALCOHOL - ETHANOL) [Suspect]
     Dosage: ORAL
     Route: 048
     Dates: start: 20080606, end: 20080606
  3. ANTELEPSIN (ANTELEPSIN - CLONAZEPAM) 2 MG [Suspect]
     Dosage: 80 MG 1X ORAL
     Route: 048
     Dates: start: 20080606, end: 20080606
  4. DOXEPIN (DOXEPIN) 50 MG [Suspect]
     Dosage: 2000 MG 1X ORAL
     Route: 048
     Dates: start: 20080606, end: 20080606
  5. SULPIRIDE (SULPIRIDE) [Suspect]
     Dosage: 200 MG 1X ORAL
     Route: 048
     Dates: start: 20080606, end: 20080606

REACTIONS (6)
  - COMA [None]
  - HYPOTENSION [None]
  - INTENTIONAL OVERDOSE [None]
  - RESPIRATORY FAILURE [None]
  - SUICIDE ATTEMPT [None]
  - TACHYCARDIA [None]
